FAERS Safety Report 10544207 (Version 2)
Quarter: 2014Q4

REPORT INFORMATION
  Report Type: Spontaneous
  Country: US (occurrence: None)
  Receive Date: 20141010
  Receipt Date: 20141205
  Transmission Date: 20150529
  Serious: Yes (Other)
  Sender: FDA-Public Use
  Company Number: 163-POMAL-14072153

PATIENT
  Age: 82 Year
  Sex: Female

DRUGS (1)
  1. POMALYST [Suspect]
     Active Substance: POMALIDOMIDE
     Indication: PLASMA CELL MYELOMA
     Dosage: THERAPY DATES: 11/21/2013 - TEMPORARILY INTERRUPTED, 1.5 MG MG, 21 IN 28 D, PO
     Route: 048
     Dates: start: 20131121

REACTIONS (2)
  - Herpes zoster [None]
  - Neutrophil count decreased [None]

NARRATIVE: CASE EVENT DATE: 20140705
